FAERS Safety Report 12392938 (Version 3)
Quarter: 2016Q2

REPORT INFORMATION
  Report Type: Spontaneous
  Country: JP (occurrence: JP)
  Receive Date: 20160523
  Receipt Date: 20160630
  Transmission Date: 20160815
  Serious: Yes (Hospitalization)
  Sender: FDA-Public Use
  Company Number: PHJP2016JP003066

PATIENT
  Age: 67 Year
  Sex: Female
  Weight: 51 kg

DRUGS (7)
  1. TAKEPRON [Concomitant]
     Active Substance: LANSOPRAZOLE
     Indication: GASTRIC ULCER
     Dosage: 30 MG, UNK
     Route: 048
     Dates: start: 20140327, end: 20150423
  2. HIRUDOID [Concomitant]
     Active Substance: GLYCOSAMINOGLYCANS
     Indication: SKIN ULCER
     Dosage: UNK
     Route: 061
     Dates: start: 20140225, end: 20150423
  3. OXYCONTIN [Concomitant]
     Active Substance: OXYCODONE HYDROCHLORIDE
     Indication: METASTASES TO BONE
     Dosage: 2.5 MG, UNK
     Route: 048
     Dates: start: 20140327
  4. MOBIC [Concomitant]
     Active Substance: MELOXICAM
     Indication: METASTASES TO BONE
     Dosage: 5 MG, UNK
     Route: 048
     Dates: start: 20141127
  5. XELODA [Concomitant]
     Active Substance: CAPECITABINE
     Indication: BREAST CANCER
     Dosage: 900 MG, BID
     Route: 048
     Dates: start: 20150219, end: 20150504
  6. PYDOXAL [Concomitant]
     Active Substance: PYRIDOXAL
     Indication: STOMATITIS
     Dosage: 10 MG, TID
     Route: 048
     Dates: start: 20150319
  7. ZOMETA [Suspect]
     Active Substance: ZOLEDRONIC ACID
     Indication: METASTASES TO BONE
     Dosage: 4 MG, UNK
     Route: 041
     Dates: start: 20140121, end: 20150415

REACTIONS (5)
  - Arthralgia [Unknown]
  - Pain in extremity [Not Recovered/Not Resolved]
  - Femur fracture [Recovering/Resolving]
  - Exostosis [Unknown]
  - Fall [Recovered/Resolved with Sequelae]

NARRATIVE: CASE EVENT DATE: 20150313
